FAERS Safety Report 6249188-0 (Version None)
Quarter: 2009Q2

REPORT INFORMATION
  Report Type: 
  Country: None (occurrence: None)
  Receive Date: 20090629
  Receipt Date: 20090623
  Transmission Date: 20091009
  Serious: Yes (Death)
  Sender: FDA-Public Use
  Company Number: PHHY2009BR24930

PATIENT
  Age: 71 Year
  Sex: Male

DRUGS (1)
  1. FORASEQ [Suspect]
     Indication: LUNG DISORDER
     Dosage: 2 INHALATIONS/DAY
     Dates: start: 20070101

REACTIONS (2)
  - LUNG DISORDER [None]
  - NEOPLASM MALIGNANT [None]
